FAERS Safety Report 24670787 (Version 1)
Quarter: 2024Q4

REPORT INFORMATION
  Report Type: Spontaneous
  Country: GB (occurrence: GB)
  Receive Date: 20241127
  Receipt Date: 20241127
  Transmission Date: 20250115
  Serious: Yes (Other)
  Sender: CALLIDITAS THERAPEUTICS AB
  Company Number: None

PATIENT
  Age: 62 Year
  Sex: Male
  Weight: 71 kg

DRUGS (7)
  1. LISINOPRIL [Concomitant]
     Active Substance: LISINOPRIL
     Indication: Adverse drug reaction
     Dosage: ()
     Dates: start: 20070601
  2. ALLOPURINOL [Concomitant]
     Active Substance: ALLOPURINOL
     Indication: Adverse drug reaction
     Dosage: ()
     Dates: start: 20160701
  3. ATORVASTATIN [Concomitant]
     Active Substance: ATORVASTATIN
     Indication: Adverse drug reaction
     Dosage: ()
     Dates: start: 20170901
  4. PREDNISOLONE [Concomitant]
     Active Substance: PREDNISOLONE
     Indication: Adverse drug reaction
     Dosage: ()
     Dates: start: 20200128, end: 20241105
  5. EDOXABAN [Concomitant]
     Active Substance: EDOXABAN
     Indication: Adverse drug reaction
     Dosage: ()
     Dates: start: 20220108
  6. DAPAGLIFLOZIN [Concomitant]
     Active Substance: DAPAGLIFLOZIN
     Indication: Adverse drug reaction
     Dosage: ()
     Dates: start: 20220108
  7. BUDESONIDE [Suspect]
     Active Substance: BUDESONIDE
     Indication: Adverse drug reaction
     Dosage: 9MG/DAY
     Dates: start: 20240510, end: 20241008

REACTIONS (1)
  - Central serous chorioretinopathy [Recovering/Resolving]

NARRATIVE: CASE EVENT DATE: 20240927
